FAERS Safety Report 9036378 (Version 1)
Quarter: 2013Q1

REPORT INFORMATION
  Report Type: Spontaneous
  Country: US (occurrence: None)
  Receive Date: 20130123
  Receipt Date: 20130123
  Transmission Date: 20140127
  Serious: Yes (Hospitalization)
  Sender: FDA-Public Use
  Company Number: None

PATIENT
  Age: 57 Year
  Sex: Female
  Weight: 40.82 kg

DRUGS (2)
  1. PRILOSEC [Suspect]
     Route: 048
     Dates: start: 20120303, end: 20120821
  2. PRILOSEC [Suspect]
     Route: 048
     Dates: start: 20120303, end: 20120821

REACTIONS (16)
  - Abdominal pain [None]
  - Nausea [None]
  - Fatigue [None]
  - Asthenia [None]
  - Weight decreased [None]
  - Anxiety [None]
  - Panic attack [None]
  - Dizziness [None]
  - Vomiting [None]
  - Thinking abnormal [None]
  - Influenza like illness [None]
  - Dyspnoea [None]
  - Chest discomfort [None]
  - Palpitations [None]
  - Confusional state [None]
  - Hypoaesthesia [None]
